FAERS Safety Report 6862217-6 (Version None)
Quarter: 2010Q3

REPORT INFORMATION
  Report Type: 
  Country: None (occurrence: None)
  Receive Date: 20100721
  Receipt Date: 20100707
  Transmission Date: 20110219
  Serious: Yes (Other)
  Sender: FDA-Public Use
  Company Number: PHHY2010GB19880

PATIENT
  Sex: Male

DRUGS (3)
  1. CLOZARIL [Suspect]
     Indication: SCHIZOPHRENIA
     Dosage: 700 MG/DAY
     Route: 048
     Dates: start: 20081103
  2. HYOSCINE HBR HYT [Concomitant]
     Indication: SALIVARY HYPERSECRETION
     Dosage: 600 MG/DAY
  3. OMEPRAZOLE [Concomitant]
     Indication: GASTRITIS
     Dosage: 20 MG/DAY
     Route: 048

REACTIONS (3)
  - HEPATITIS [None]
  - HEPATITIS C VIRUS TEST POSITIVE [None]
  - LIVER FUNCTION TEST ABNORMAL [None]
